FAERS Safety Report 11861698 (Version 2)
Quarter: 2015Q4

REPORT INFORMATION
  Report Type: Spontaneous
  Country: CN (occurrence: CN)
  Receive Date: 20151222
  Receipt Date: 20151231
  Transmission Date: 20160305
  Serious: Yes (Hospitalization)
  Sender: FDA-Public Use
  Company Number: CN-CELGENE-CHN-2015122371

PATIENT
  Age: 55 Year
  Sex: Male
  Weight: 102 kg

DRUGS (10)
  1. DEXAMETHASONE. [Suspect]
     Active Substance: DEXAMETHASONE
     Indication: PLASMA CELL MYELOMA
     Route: 065
     Dates: start: 20150128, end: 20151030
  2. DEXAMETHASONE. [Suspect]
     Active Substance: DEXAMETHASONE
     Route: 065
  3. BONIN [Suspect]
     Active Substance: PAMIDRONATE DISODIUM
     Indication: BONE PAIN
  4. ASPIRIN. [Concomitant]
     Active Substance: ASPIRIN
     Indication: THROMBOSIS PROPHYLAXIS
     Route: 048
     Dates: start: 20150128
  5. BONIN [Suspect]
     Active Substance: PAMIDRONATE DISODIUM
     Indication: HYPERCALCAEMIA
  6. REVLIMID [Suspect]
     Active Substance: LENALIDOMIDE
     Indication: PLASMA CELL MYELOMA
     Dosage: 25 MILLIGRAM
     Route: 048
     Dates: start: 20150128, end: 20151029
  7. INSULIN [Concomitant]
     Active Substance: INSULIN NOS
     Indication: PRODUCT USED FOR UNKNOWN INDICATION
     Dosage: 17/13 UI
     Route: 065
     Dates: start: 20140420
  8. DEXAMETHASONE. [Suspect]
     Active Substance: DEXAMETHASONE
     Route: 065
     Dates: start: 201404, end: 201410
  9. BONIN [Suspect]
     Active Substance: PAMIDRONATE DISODIUM
     Indication: BONE PAIN
     Route: 041
     Dates: start: 20140405
  10. CALCIUM CARBONATE. [Concomitant]
     Active Substance: CALCIUM CARBONATE
     Indication: OSTEOPOROSIS
     Route: 048
     Dates: start: 20140326

REACTIONS (1)
  - Osteomyelitis [Recovering/Resolving]

NARRATIVE: CASE EVENT DATE: 20151109
